FAERS Safety Report 6969629-0 (Version None)
Quarter: 2010Q3

REPORT INFORMATION
  Report Type: 
  Country: None (occurrence: None)
  Receive Date: 20100907
  Receipt Date: 20100830
  Transmission Date: 20110219
  Serious: Yes (Other)
  Sender: FDA-Public Use
  Company Number: JP-BRISTOL-MYERS SQUIBB COMPANY-15271851

PATIENT

DRUGS (3)
  1. CISPLATIN [Suspect]
     Indication: OESOPHAGEAL CARCINOMA
     Route: 041
  2. FLUOROURACIL [Suspect]
     Indication: OESOPHAGEAL CARCINOMA
  3. RADIATION THERAPY [Suspect]
     Indication: OESOPHAGEAL CARCINOMA
     Dosage: 1 DF:50GY

REACTIONS (2)
  - ANASTOMOTIC STENOSIS [None]
  - RESPIRATORY DISORDER [None]
